FAERS Safety Report 9974186 (Version 2)
Quarter: 2014Q2

REPORT INFORMATION
  Report Type: Report from Study
  Country: CN (occurrence: CN)
  Receive Date: 20140306
  Receipt Date: 20140604
  Transmission Date: 20141212
  Serious: Yes (Death)
  Sender: FDA-Public Use
  Company Number: CN-GLAXOSMITHKLINE-B0974043A

PATIENT
  Age: 58 Year
  Sex: Female
  Weight: 59 kg

DRUGS (4)
  1. FLUTICASONE FUROATE [Suspect]
     Indication: CHRONIC OBSTRUCTIVE PULMONARY DISEASE
     Dates: start: 20131230, end: 20140227
  2. UNKNOWN DRUG [Concomitant]
     Indication: HYPERTENSION
     Route: 048
     Dates: start: 2010, end: 20140227
  3. ASPIRIN EC [Concomitant]
     Indication: CORONARY ARTERY DISEASE
     Dosage: .1G PER DAY
     Route: 048
     Dates: start: 201212, end: 20140227
  4. SALBUTAMOL [Concomitant]
     Indication: CHRONIC OBSTRUCTIVE PULMONARY DISEASE
     Route: 055
     Dates: start: 20131226, end: 20140227

REACTIONS (1)
  - Death [Fatal]
